FAERS Safety Report 5380827-2 (Version None)
Quarter: 2007Q2

REPORT INFORMATION
  Report Type: 
  Country: None (occurrence: None)
  Receive Date: 20070530
  Receipt Date: 20070221
  Transmission Date: 20071010
  Serious: No
  Sender: FDA-Public Use
  Company Number: 2007PV030534

PATIENT
  Age: 69 Year
  Sex: Female
  Weight: 120.2032 kg

DRUGS (2)
  1. BYETTA [Suspect]
     Indication: DIABETES MELLITUS NON-INSULIN-DEPENDENT
     Dosage: 5 MCG; BID; SC
     Route: 058
     Dates: start: 20070101
  2. METFORMIN HCL [Concomitant]

REACTIONS (6)
  - DECREASED APPETITE [None]
  - ENERGY INCREASED [None]
  - FEELING COLD [None]
  - HYPOAESTHESIA [None]
  - HYPOGLYCAEMIA [None]
  - WEIGHT DECREASED [None]
